FAERS Safety Report 4840023-1 (Version None)
Quarter: 2005Q4

REPORT INFORMATION
  Report Type: 
  Country: None (occurrence: None)
  Receive Date: 20051125
  Receipt Date: 20051115
  Transmission Date: 20060501
  Serious: Yes (Hospitalization)
  Sender: FDA-Public Use
  Company Number: 05H-124-0303839-00

PATIENT
  Age: 24 Year
  Sex: Female
  Weight: 58.9676 kg

DRUGS (1)
  1. BUPIVACAINE HCL [Suspect]
     Indication: SPINAL ANAESTHESIA
     Dosage: 1.5 - 2 CC, STAT, SUBARACHNOID
     Dates: start: 20050803

REACTIONS (6)
  - ABDOMINAL SYMPTOM [None]
  - DRUG EXPOSURE DURING PREGNANCY [None]
  - DYSKINESIA [None]
  - IRRITABILITY [None]
  - PROCEDURAL COMPLICATION [None]
  - WOUND DEHISCENCE [None]
